FAERS Safety Report 16982933 (Version 1)
Quarter: 2019Q4

REPORT INFORMATION
  Report Type: Spontaneous
  Country: US (occurrence: US)
  Receive Date: 20191101
  Receipt Date: 20191101
  Transmission Date: 20200122
  Serious: No
  Sender: FDA-Public Use
  Company Number: US-009507513-1910USA005780

PATIENT
  Sex: Male

DRUGS (15)
  1. VORICONAZOLE. [Concomitant]
     Active Substance: VORICONAZOLE
     Indication: UVEITIS
     Dosage: THRICE WEEKLY
  2. VORICONAZOLE. [Concomitant]
     Active Substance: VORICONAZOLE
     Indication: ENDOPHTHALMITIS
  3. NOXAFIL [Suspect]
     Active Substance: POSACONAZOLE
     Indication: VITRITIS
  4. AMPHOTERICIN B. [Concomitant]
     Active Substance: AMPHOTERICIN B
     Indication: UVEITIS
     Dosage: THRICE WEEKLY
  5. AMPHOTERICIN B. [Concomitant]
     Active Substance: AMPHOTERICIN B
     Indication: SCOPULARIOPSIS INFECTION
  6. VORICONAZOLE. [Concomitant]
     Active Substance: VORICONAZOLE
     Indication: SCOPULARIOPSIS INFECTION
  7. NOXAFIL [Suspect]
     Active Substance: POSACONAZOLE
     Indication: ENDOPHTHALMITIS
  8. AMPHOTERICIN B. [Concomitant]
     Active Substance: AMPHOTERICIN B
     Indication: VITRITIS
  9. AMPHOTERICIN B. [Concomitant]
     Active Substance: AMPHOTERICIN B
     Indication: PHAEOHYPHOMYCOSIS
  10. VORICONAZOLE. [Concomitant]
     Active Substance: VORICONAZOLE
     Indication: PHAEOHYPHOMYCOSIS
  11. VORICONAZOLE. [Concomitant]
     Active Substance: VORICONAZOLE
     Indication: VITRITIS
  12. NOXAFIL [Suspect]
     Active Substance: POSACONAZOLE
     Indication: SCOPULARIOPSIS INFECTION
  13. NOXAFIL [Suspect]
     Active Substance: POSACONAZOLE
     Indication: PHAEOHYPHOMYCOSIS
  14. AMPHOTERICIN B. [Concomitant]
     Active Substance: AMPHOTERICIN B
     Indication: ENDOPHTHALMITIS
  15. NOXAFIL [Suspect]
     Active Substance: POSACONAZOLE
     Indication: UVEITIS
     Dosage: UNK
     Route: 048

REACTIONS (1)
  - Product use in unapproved indication [Unknown]
